FAERS Safety Report 19569954 (Version 3)
Quarter: 2021Q4

REPORT INFORMATION
  Report Type: Spontaneous
  Country: IN (occurrence: IN)
  Receive Date: 20210715
  Receipt Date: 20211026
  Transmission Date: 20220303
  Serious: Yes (Death, Other)
  Sender: FDA-Public Use
  Company Number: IN-PFIZER INC-2019339654

PATIENT
  Age: 25 Year
  Sex: Male

DRUGS (2)
  1. CRIZOTINIB [Suspect]
     Active Substance: CRIZOTINIB
     Indication: Non-small cell lung cancer
     Dosage: 250 MG, TWICE A DAY
     Route: 048
     Dates: start: 20190520, end: 20210811
  2. RIVAROXABAN [Concomitant]
     Active Substance: RIVAROXABAN
     Dosage: 15 MG, DAILY

REACTIONS (4)
  - Neoplasm progression [Fatal]
  - Deep vein thrombosis [Unknown]
  - Acne [Unknown]
  - Pain [Unknown]

NARRATIVE: CASE EVENT DATE: 20190701
